FAERS Safety Report 17616829 (Version 6)
Quarter: 2020Q4

REPORT INFORMATION
  Report Type: Report from Study
  Country: BE (occurrence: BE)
  Receive Date: 20200402
  Receipt Date: 20201014
  Transmission Date: 20210113
  Serious: Yes (Death, Hospitalization)
  Sender: FDA-Public Use
  Company Number: BE-PFIZER INC-2020125592

PATIENT
  Age: 51 Year
  Sex: Female
  Weight: 83.7 kg

DRUGS (6)
  1. LOCOIDEN [Concomitant]
     Indication: SKIN TOXICITY
     Dosage: 0.1 %, 3X/DAY
     Route: 003
     Dates: start: 20200316
  2. TALAZOPARIB. [Suspect]
     Active Substance: TALAZOPARIB
     Indication: PANCREATIC CARCINOMA METASTATIC
     Dosage: 0.75 MG, 1X/DAY
     Route: 048
     Dates: start: 20200311, end: 20200324
  3. BINIMETINIB [Suspect]
     Active Substance: BINIMETINIB
     Indication: PANCREATIC CARCINOMA METASTATIC
     Dosage: 45 MG, 2X/DAY 7 DAYS ON AND 7 DAYS OFF (7D/7D)
     Route: 048
     Dates: start: 20200311, end: 20200318
  4. DIAZEPAM. [Concomitant]
     Active Substance: DIAZEPAM
     Indication: ANXIETY
     Dosage: 10 MG, 1X/DAY
     Route: 048
     Dates: start: 20200316
  5. KLIPAL CODEINE [Concomitant]
     Active Substance: ACETAMINOPHEN\CODEINE PHOSPHATE
     Indication: PAIN
     Dosage: 600 MG, 3X/DAY
     Route: 048
     Dates: start: 20200303, end: 20200325
  6. METEOXANE [AMOBARBITAL;ATROPA BELLADONNA EXTRACT;DIMETICONE;ERGOTAMINE [Concomitant]
     Indication: ABDOMINAL DISCOMFORT
     Dosage: 80 MG, 3X/DAY
     Route: 048
     Dates: start: 20200316, end: 20200325

REACTIONS (2)
  - Pulmonary embolism [Not Recovered/Not Resolved]
  - Deep vein thrombosis [Not Recovered/Not Resolved]

NARRATIVE: CASE EVENT DATE: 20200325
